FAERS Safety Report 17901198 (Version 1)
Quarter: 2020Q2

REPORT INFORMATION
  Report Type: Spontaneous
  Country: US (occurrence: US)
  Receive Date: 20200616
  Receipt Date: 20200616
  Transmission Date: 20200714
  Serious: Yes (Hospitalization, Other)
  Sender: FDA-Public Use
  Company Number: US-HIKMA PHARMACEUTICALS USA INC.-US-H14001-20-02765

PATIENT
  Age: 88 Year
  Sex: Male

DRUGS (3)
  1. LEVETIRACETAM. [Suspect]
     Active Substance: LEVETIRACETAM
     Indication: SEIZURE PROPHYLAXIS
     Route: 042
  2. ALTEPLASE. [Concomitant]
     Active Substance: ALTEPLASE
     Indication: ISCHAEMIC STROKE
     Route: 065
  3. NICARDIPINE [Suspect]
     Active Substance: NICARDIPINE
     Indication: BLOOD PRESSURE INCREASED
     Route: 065

REACTIONS (8)
  - Haemorrhage [Recovered/Resolved]
  - Injection site haematoma [Recovered/Resolved]
  - Injection site oedema [Recovered/Resolved]
  - Hypertension [Recovered/Resolved]
  - Injection site vesicles [Recovered/Resolved]
  - Administration site extravasation [Recovered/Resolved]
  - Injection site pain [Recovered/Resolved]
  - Skin laceration [Recovered/Resolved]
